FAERS Safety Report 8114522-3 (Version None)
Quarter: 2012Q1

REPORT INFORMATION
  Report Type: 
  Country: None (occurrence: None)
  Receive Date: 20120206
  Receipt Date: 20120130
  Transmission Date: 20120608
  Serious: No
  Sender: FDA-Public Use
  Company Number: US-PFIZER INC-2012027983

PATIENT
  Sex: Male

DRUGS (1)
  1. EPIPEN [Suspect]

REACTIONS (3)
  - INJURY ASSOCIATED WITH DEVICE [None]
  - ACCIDENTAL EXPOSURE [None]
  - INJECTION SITE PAIN [None]
